FAERS Safety Report 5588225-3 (Version None)
Quarter: 2008Q1

REPORT INFORMATION
  Report Type: 
  Country: None (occurrence: None)
  Receive Date: 20080109
  Receipt Date: 20080109
  Transmission Date: 20080703
  Serious: Yes (Other)
  Sender: FDA-Public Use
  Company Number: None

PATIENT
  Age: 54 Year
  Sex: Female
  Weight: 61.2356 kg

DRUGS (4)
  1. ACETAMINOPHEN [Suspect]
     Indication: HEADACHE
     Dosage: 2 CAPLETS  ONCE  PO
     Route: 048
     Dates: start: 20070101, end: 20070101
  2. ACETAMINOPHEN [Suspect]
     Indication: HEADACHE
     Dosage: 2 CAPLETS  ONCE  PO
     Route: 048
     Dates: start: 20070104, end: 20070104
  3. ACETAMINOPHEN [Suspect]
     Indication: HEADACHE
     Dosage: 2 CAPLETS  ONCE  PO
     Route: 048
     Dates: start: 20080101, end: 20080101
  4. ACETAMINOPHEN [Suspect]
     Indication: HEADACHE
     Dosage: 2 CAPLETS  ONCE  PO
     Route: 048
     Dates: start: 20080104, end: 20080104

REACTIONS (5)
  - DRUG HYPERSENSITIVITY [None]
  - HYPOAESTHESIA [None]
  - OEDEMA PERIPHERAL [None]
  - PALPITATIONS [None]
  - SWELLING FACE [None]
